FAERS Safety Report 14858791 (Version 1)
Quarter: 2018Q2

REPORT INFORMATION
  Report Type: Spontaneous
  Country: CH (occurrence: CH)
  Receive Date: 20180508
  Receipt Date: 20180508
  Transmission Date: 20180711
  Serious: Yes (Other)
  Sender: FDA-Public Use
  Company Number: PHHY2018CH072142

PATIENT
  Age: 66 Year
  Sex: Male

DRUGS (3)
  1. TRAMETINIB [Suspect]
     Active Substance: TRAMETINIB
     Dosage: 1.5 MG, QD
     Route: 065
  2. TRAMETINIB [Suspect]
     Active Substance: TRAMETINIB
     Indication: HISTIOCYTIC SARCOMA
     Dosage: 2 MG, QD
     Route: 065
  3. TRAMETINIB [Suspect]
     Active Substance: TRAMETINIB
     Dosage: 1 MG, QD
     Route: 065

REACTIONS (9)
  - Histiocytic sarcoma [Unknown]
  - Dermatitis acneiform [Unknown]
  - Metastases to lymph nodes [Unknown]
  - Product use in unapproved indication [Unknown]
  - Electrocardiogram QT prolonged [Unknown]
  - Malignant neoplasm progression [Unknown]
  - Metastases to lung [Unknown]
  - Metastases to liver [Unknown]
  - Metastases to bone [Unknown]
